FAERS Safety Report 14137826 (Version 2)
Quarter: 2018Q1

REPORT INFORMATION
  Report Type: Spontaneous
  Country: PL (occurrence: PL)
  Receive Date: 20171027
  Receipt Date: 20180119
  Transmission Date: 20180508
  Serious: Yes (Other)
  Sender: FDA-Public Use
  Company Number: PL-ASTRAZENECA-2017SF08503

PATIENT
  Age: 17 Year
  Sex: Female

DRUGS (2)
  1. DAPAGLIFLOZIN. [Suspect]
     Active Substance: DAPAGLIFLOZIN
     Indication: WEIGHT DECREASED
     Route: 048
  2. INSULIN [Concomitant]
     Active Substance: INSULIN NOS

REACTIONS (4)
  - Tetanus [Recovered/Resolved]
  - Dysphonia [Recovered/Resolved]
  - Blood calcium decreased [Recovered/Resolved]
  - Cough [Recovered/Resolved]
